FAERS Safety Report 13902842 (Version 2)
Quarter: 2017Q3

REPORT INFORMATION
  Report Type: Spontaneous
  Country: CA (occurrence: CA)
  Receive Date: 20170824
  Receipt Date: 20170914
  Transmission Date: 20171127
  Serious: No
  Sender: FDA-Public Use
  Company Number: CA-CONCORDIA PHARMACEUTICALS INC.-GSH201708-004744

PATIENT
  Age: 71 Year
  Sex: Female

DRUGS (16)
  1. XELJANZ [Concomitant]
     Active Substance: TOFACITINIB CITRATE
  2. ACTEMRA [Concomitant]
     Active Substance: TOCILIZUMAB
  3. MTX [Concomitant]
     Active Substance: METHOTREXATE SODIUM
     Dates: start: 2004, end: 2012
  4. KENALOG [Concomitant]
     Active Substance: TRIAMCINOLONE ACETONIDE
  5. ENBREL [Concomitant]
     Active Substance: ETANERCEPT
  6. RITUXAN [Concomitant]
     Active Substance: RITUXIMAB
  7. HUMIRA [Concomitant]
     Active Substance: ADALIMUMAB
  8. CIMZIA [Concomitant]
     Active Substance: CERTOLIZUMAB PEGOL
  9. ARAVA [Concomitant]
     Active Substance: LEFLUNOMIDE
  10. REMICADE [Concomitant]
     Active Substance: INFLIXIMAB
     Dates: end: 2012
  11. ORENCIA [Concomitant]
     Active Substance: ABATACEPT
  12. FOLIC ACID. [Concomitant]
     Active Substance: FOLIC ACID
     Dates: end: 2012
  13. PLAQUENIL [Suspect]
     Active Substance: HYDROXYCHLOROQUINE SULFATE
     Indication: RHEUMATOID ARTHRITIS
     Route: 048
     Dates: end: 2012
  14. TYLENOL [Concomitant]
     Active Substance: ACETAMINOPHEN
     Dates: end: 2012
  15. PREDNISONE. [Concomitant]
     Active Substance: PREDNISONE
     Dates: end: 2012
  16. CALCIUM [Concomitant]
     Active Substance: CALCIUM
     Dates: end: 2012

REACTIONS (1)
  - Drug intolerance [Unknown]
